FAERS Safety Report 5220757-X (Version None)
Quarter: 2007Q1

REPORT INFORMATION
  Report Type: 
  Country: None (occurrence: None)
  Receive Date: 20070126
  Receipt Date: 20070116
  Transmission Date: 20070707
  Serious: Yes (Hospitalization)
  Sender: FDA-Public Use
  Company Number: DE-ROCHE-478354

PATIENT
  Age: 72 Year
  Sex: Male
  Weight: 88 kg

DRUGS (16)
  1. DACLIZUMAB [Suspect]
     Route: 042
     Dates: start: 20030923, end: 20030923
  2. DACLIZUMAB [Suspect]
     Route: 042
     Dates: start: 20031007
  3. MYCOPHENOLATE MOFETIL [Suspect]
     Route: 048
     Dates: start: 20031007
  4. MYCOPHENOLATE MOFETIL [Suspect]
     Route: 048
     Dates: start: 20050316
  5. TACROLIMUS [Suspect]
     Route: 048
     Dates: start: 20031007
  6. PREDNISOLONE [Suspect]
     Route: 048
     Dates: start: 20031007
  7. PREDNISOLONE [Suspect]
     Route: 048
     Dates: start: 20050316
  8. DILTIAZAM [Concomitant]
     Dates: start: 20050316
  9. BISOPROLOL FUMARATE [Concomitant]
     Dates: start: 20050316
  10. ALLOPURINOL SODIUM [Concomitant]
     Dates: start: 20050316
  11. UNAT [Concomitant]
     Dates: start: 20050316
  12. ALDACTONE [Concomitant]
     Dates: start: 20050316
  13. RAMIPRIL [Concomitant]
     Dates: start: 20050316
  14. ACTRAPID [Concomitant]
     Dates: start: 20050316
  15. PROTAPHANE [Concomitant]
     Dates: start: 20050316
  16. CLEXANE [Concomitant]
     Dates: start: 20050316

REACTIONS (1)
  - LEIOMYOSARCOMA [None]
